FAERS Safety Report 18367140 (Version 1)
Quarter: 2020Q4

REPORT INFORMATION
  Report Type: Spontaneous
  Country: US (occurrence: US)
  Receive Date: 20201009
  Receipt Date: 20201009
  Transmission Date: 20210114
  Serious: No
  Sender: FDA-Public Use
  Company Number: US-TEVA-2020-US-1836704

PATIENT
  Sex: Female

DRUGS (5)
  1. LISINOPRIL. [Concomitant]
     Active Substance: LISINOPRIL
  2. COPAXONE [Suspect]
     Active Substance: GLATIRAMER ACETATE
     Indication: MULTIPLE SCLEROSIS
     Dosage: FORM STRENGTH: UNKNOWN
     Route: 065
  3. DULOXETINE. [Concomitant]
     Active Substance: DULOXETINE
  4. BACLOFEN. [Concomitant]
     Active Substance: BACLOFEN
  5. ISOSORBIDE. [Concomitant]
     Active Substance: ISOSORBIDE

REACTIONS (3)
  - Dyspnoea [Recovered/Resolved]
  - Mouth swelling [Recovered/Resolved]
  - Swelling face [Recovered/Resolved]
